FAERS Safety Report 24221456 (Version 1)
Quarter: 2024Q3

REPORT INFORMATION
  Report Type: Report from Study
  Country: US (occurrence: None)
  Receive Date: 20240819
  Receipt Date: 20240819
  Transmission Date: 20241017
  Serious: Yes (Other)
  Sender: ASTRAZENECA
  Company Number: 2023A133057

PATIENT
  Sex: Female

DRUGS (1)
  1. LYNPARZA [Suspect]
     Active Substance: OLAPARIB
     Route: 048
     Dates: start: 20221207

REACTIONS (9)
  - Transient ischaemic attack [Unknown]
  - Neuropathy peripheral [Unknown]
  - Eye disorder [Unknown]
  - Increased tendency to bruise [Unknown]
  - Diarrhoea [Unknown]
  - Vision blurred [Unknown]
  - Eye pain [Unknown]
  - Photophobia [Unknown]
  - Insurance issue [Unknown]
